FAERS Safety Report 7590580-X (Version None)
Quarter: 2011Q3

REPORT INFORMATION
  Report Type: 
  Country: None (occurrence: None)
  Receive Date: 20110705
  Receipt Date: 20110628
  Transmission Date: 20111222
  Serious: Yes (Other)
  Sender: FDA-Public Use
  Company Number: US-PFIZER INC-2009281365

PATIENT
  Sex: Male
  Weight: 68 kg

DRUGS (8)
  1. ACETAMINOPHEN AND OXYCODONE HCL [Concomitant]
     Indication: EYE PAIN
     Dosage: UNK
     Dates: start: 20091022
  2. SYNTHROID [Concomitant]
     Indication: THYROID DISORDER
     Dates: start: 20000101
  3. VITAMIN D [Concomitant]
  4. SUTENT [Suspect]
     Dosage: 37.5 MG, 1X/DAY
  5. PREDNISONE [Concomitant]
     Indication: HERPES ZOSTER
     Dosage: UNK
     Route: 047
     Dates: start: 20091103
  6. PREDNISONE [Concomitant]
     Indication: KERATITIS
  7. SUTENT [Suspect]
     Indication: THYROID CANCER
     Dosage: 50 MG, 1X/DAY, 4 WEEKS ON AND 2 WEEKS OFF
     Dates: start: 20090611
  8. NEXIUM [Concomitant]
     Dosage: 40 MG, 1X/DAY

REACTIONS (3)
  - IMMUNOSUPPRESSION [None]
  - HERPES ZOSTER OPHTHALMIC [None]
  - PALMAR-PLANTAR ERYTHRODYSAESTHESIA SYNDROME [None]
